FAERS Safety Report 20784871 (Version 4)
Quarter: 2022Q3

REPORT INFORMATION
  Report Type: Report from Study
  Country: US (occurrence: US)
  Receive Date: 20220504
  Receipt Date: 20220812
  Transmission Date: 20221026
  Serious: No
  Sender: FDA-Public Use
  Company Number: US-NOVARTISTESTPH-NVSC2022US102367

PATIENT
  Sex: Female

DRUGS (2)
  1. ENTRESTO [Suspect]
     Active Substance: SACUBITRIL\VALSARTAN
     Indication: Cardiac failure
     Dosage: 1 DOSAGE FORM, BID(49/51MG)
     Route: 048
     Dates: start: 20220430
  2. ENTRESTO [Suspect]
     Active Substance: SACUBITRIL\VALSARTAN
     Dosage: 200 MG, BID (97/103MG DISPERSIBLE TABLET)
     Route: 048

REACTIONS (10)
  - Hypervolaemia [Unknown]
  - Ocular discomfort [Unknown]
  - Rhinorrhoea [Unknown]
  - Hypoaesthesia [Unknown]
  - Weight increased [Unknown]
  - Abdominal distension [Unknown]
  - Swelling [Unknown]
  - Fatigue [Unknown]
  - Cough [Unknown]
  - Inappropriate schedule of product administration [Unknown]
